FAERS Safety Report 7686669-7 (Version None)
Quarter: 2011Q3

REPORT INFORMATION
  Report Type: 
  Country: None (occurrence: None)
  Receive Date: 20110816
  Receipt Date: 20110721
  Transmission Date: 20111222
  Serious: No
  Sender: FDA-Public Use
  Company Number: US-BAYER-2011-010553

PATIENT
  Age: 64 Year
  Sex: Female

DRUGS (19)
  1. ZETIA [Concomitant]
  2. NEURONTIN [Concomitant]
  3. TENORMIN [Concomitant]
  4. POTASSIUM [Concomitant]
  5. BETASERON [Suspect]
     Indication: MULTIPLE SCLEROSIS
     Dosage: 2 MIU, QOD
     Route: 058
     Dates: start: 20110107
  6. LASIX [Concomitant]
  7. SOLU-MEDROL [Concomitant]
     Dosage: 1 G, Q1MON
     Route: 042
  8. LIPITOR [Concomitant]
  9. FERROUS SULFATE TAB [Concomitant]
  10. LOPID [Concomitant]
  11. EFFEXOR [Concomitant]
  12. CALCIUM W/VITAMIN D NOS [Concomitant]
  13. BETASERON [Suspect]
     Dosage: 8 MIU, QOD
     Route: 058
  14. ALCOWIPES [Suspect]
     Dosage: UNK
     Route: 061
     Dates: start: 20110107
  15. SYNTHROID [Concomitant]
  16. MELOXICAM [Concomitant]
  17. METFORMIN HCL [Concomitant]
  18. NEXIUM [Concomitant]
  19. NITROGLYCERIN [Concomitant]

REACTIONS (2)
  - FATIGUE [None]
  - INJECTION SITE ERYTHEMA [None]
